FAERS Safety Report 9710452 (Version 1)
Quarter: 2013Q4

REPORT INFORMATION
  Report Type: Spontaneous
  Country: US (occurrence: US)
  Receive Date: 20131126
  Receipt Date: 20131126
  Transmission Date: 20140711
  Serious: No
  Sender: FDA-Public Use
  Company Number: US-BRISTOL-MYERS SQUIBB COMPANY-19420405

PATIENT
  Age: 60 Year
  Sex: Female
  Weight: 88.43 kg

DRUGS (3)
  1. BYDUREON 2MG SUSPENSION [Suspect]
     Indication: TYPE 2 DIABETES MELLITUS
     Route: 058
     Dates: start: 2013
  2. JANUMET [Concomitant]
  3. AMARYL [Concomitant]

REACTIONS (2)
  - Injection site swelling [Recovering/Resolving]
  - Injection site pruritus [Recovered/Resolved]
